FAERS Safety Report 19615857 (Version 1)
Quarter: 2021Q3

REPORT INFORMATION
  Report Type: Spontaneous
  Country: US (occurrence: US)
  Receive Date: 20210727
  Receipt Date: 20210727
  Transmission Date: 20211014
  Serious: Yes (Other)
  Sender: FDA-Public Use
  Company Number: US-SA-2021SA243991

PATIENT
  Age: 42 Year
  Sex: Female

DRUGS (2)
  1. ZANTAC [Suspect]
     Active Substance: RANITIDINE HYDROCHLORIDE
     Indication: GASTROOESOPHAGEAL REFLUX DISEASE
     Dosage: 150 MG, QD
  2. ALPROLIX [Suspect]
     Active Substance: EFTRENONACOG ALFA

REACTIONS (4)
  - Throat lesion [Unknown]
  - Pain [Unknown]
  - Illness [Unknown]
  - Oesophageal carcinoma [Unknown]
